FAERS Safety Report 9228047 (Version 1)
Quarter: 2013Q2

REPORT INFORMATION
  Report Type: Spontaneous
  Country: US (occurrence: US)
  Receive Date: 20130412
  Receipt Date: 20130412
  Transmission Date: 20140414
  Serious: No
  Sender: FDA-Public Use
  Company Number: US-GLAXOSMITHKLINE-A1010105A

PATIENT
  Age: 69 Year
  Sex: Male

DRUGS (3)
  1. JALYN [Suspect]
     Indication: BENIGN PROSTATIC HYPERPLASIA
     Dosage: 1CAP AT NIGHT
     Route: 048
     Dates: start: 201301, end: 20130129
  2. ASPIRIN [Concomitant]
  3. NAPROXEN [Concomitant]

REACTIONS (2)
  - Dizziness [Not Recovered/Not Resolved]
  - Sensory disturbance [Not Recovered/Not Resolved]
